FAERS Safety Report 20139824 (Version 4)
Quarter: 2022Q3

REPORT INFORMATION
  Report Type: Spontaneous
  Country: US (occurrence: US)
  Receive Date: 20211202
  Receipt Date: 20220719
  Transmission Date: 20221026
  Serious: Yes (Other)
  Sender: FDA-Public Use
  Company Number: US-PFIZER INC-202101352689

PATIENT
  Age: 41 Year
  Sex: Female

DRUGS (6)
  1. IBRANCE [Suspect]
     Active Substance: PALBOCICLIB
     Dosage: 125 MG
     Dates: start: 20210601
  2. IBRANCE [Suspect]
     Active Substance: PALBOCICLIB
     Dosage: 125 MG
     Dates: start: 20210928
  3. IBRANCE [Suspect]
     Active Substance: PALBOCICLIB
     Dosage: 125 MG
     Dates: start: 20210927
  4. IBRANCE [Suspect]
     Active Substance: PALBOCICLIB
     Dosage: 125 MG
     Dates: start: 20211201
  5. IBRANCE [Suspect]
     Active Substance: PALBOCICLIB
     Dosage: 125 MG
     Dates: start: 20220119
  6. IBRANCE [Suspect]
     Active Substance: PALBOCICLIB
     Dosage: 125 MG

REACTIONS (20)
  - Bronchitis [Unknown]
  - Fatigue [Recovered/Resolved]
  - Nausea [Unknown]
  - Somnolence [Unknown]
  - Lacrimation increased [Unknown]
  - Arthropathy [Recovering/Resolving]
  - Hepatic enzyme increased [Recovering/Resolving]
  - Constipation [Recovered/Resolved]
  - Lethargy [Unknown]
  - Nasopharyngitis [Unknown]
  - Infection susceptibility increased [Unknown]
  - Dry skin [Unknown]
  - Pruritus [Unknown]
  - Alopecia [Unknown]
  - Lacrimation increased [Unknown]
  - Arthralgia [Unknown]
  - Pain in extremity [Unknown]
  - Upper respiratory tract infection [Unknown]
  - COVID-19 [Recovering/Resolving]
  - Abdominal discomfort [Recovered/Resolved]

NARRATIVE: CASE EVENT DATE: 20210101
